FAERS Safety Report 23123725 (Version 2)
Quarter: 2023Q4

REPORT INFORMATION
  Report Type: Spontaneous
  Country: US (occurrence: US)
  Receive Date: 20231030
  Receipt Date: 20231113
  Transmission Date: 20240109
  Serious: No
  Sender: FDA-Public Use
  Company Number: US-BAYER-2023A138042

PATIENT
  Age: 79 Year
  Sex: Female

DRUGS (1)
  1. CLIMARA [Suspect]
     Active Substance: ESTRADIOL
     Route: 062

REACTIONS (7)
  - Rash [None]
  - Erythema [None]
  - Arthralgia [None]
  - Product dose omission issue [None]
  - Product availability issue [None]
  - Dyskinesia [None]
  - Nervousness [None]
